FAERS Safety Report 9677727 (Version 1)
Quarter: 2013Q4

REPORT INFORMATION
  Report Type: Spontaneous
  Country: US (occurrence: US)
  Receive Date: 20131108
  Receipt Date: 20131108
  Transmission Date: 20140711
  Serious: Yes (Hospitalization)
  Sender: FDA-Public Use
  Company Number: US-JNJFOC-20131018184

PATIENT
  Age: 64 Year
  Sex: Male

DRUGS (14)
  1. STELARA [Suspect]
     Indication: PSORIASIS
     Route: 058
  2. OMEPRAZOLE [Suspect]
     Indication: PRODUCT USED FOR UNKNOWN INDICATION
     Route: 065
  3. LISINOPRIL [Suspect]
     Indication: PRODUCT USED FOR UNKNOWN INDICATION
     Route: 065
  4. PROTOPIC [Suspect]
     Indication: PRODUCT USED FOR UNKNOWN INDICATION
     Route: 065
  5. ADIPEX [Concomitant]
     Route: 065
  6. ALLOPURINOL [Concomitant]
     Route: 065
  7. CORVEX [Concomitant]
     Route: 065
  8. ELIDEL [Concomitant]
     Route: 065
  9. KETOCONAZOLE [Concomitant]
     Route: 065
  10. PRILOSEC [Concomitant]
     Route: 065
  11. TOPROL XL [Concomitant]
     Route: 065
  12. TRIAMCINOLONE [Concomitant]
     Route: 065
  13. NISTATIN [Concomitant]
     Route: 065
  14. DESONIDE [Concomitant]
     Route: 065

REACTIONS (1)
  - Pancreatitis acute [Not Recovered/Not Resolved]
